FAERS Safety Report 9614720 (Version 1)
Quarter: 2013Q4

REPORT INFORMATION
  Report Type: Spontaneous
  Country: US (occurrence: None)
  Receive Date: 20131009
  Receipt Date: 20131009
  Transmission Date: 20140711
  Serious: Yes (Life-Threatening, Hospitalization)
  Sender: FDA-Public Use
  Company Number: None

PATIENT
  Age: 21 Year
  Sex: Female
  Weight: 68.95 kg

DRUGS (1)
  1. PARAGUARD [Suspect]

REACTIONS (4)
  - Device dislocation [None]
  - Uterine perforation [None]
  - Pregnancy with contraceptive device [None]
  - Maternal exposure during pregnancy [None]
